FAERS Safety Report 11944247 (Version 1)
Quarter: 2016Q1

REPORT INFORMATION
  Report Type: Spontaneous
  Country: US (occurrence: US)
  Receive Date: 20160125
  Receipt Date: 20160125
  Transmission Date: 20160526
  Serious: No
  Sender: FDA-Public Use
  Company Number: US-UNITED THERAPEUTICS-UNT-2015-005409

PATIENT
  Age: 68 Year
  Sex: Male
  Weight: 96.6 kg

DRUGS (13)
  1. REMODULIN [Suspect]
     Active Substance: TREPROSTINIL
     Dosage: 0.011 ?G/KG/MIN, CONTINUING
     Route: 058
  2. TYVASO [Suspect]
     Active Substance: TREPROSTINIL
     Indication: PULMONARY ARTERIAL HYPERTENSION
     Dosage: 18-54 MICROGRAMS, QID
     Dates: start: 20151029
  3. TYVASO [Suspect]
     Active Substance: TREPROSTINIL
     Dosage: UNK
  4. REMODULIN [Suspect]
     Active Substance: TREPROSTINIL
     Dosage: UNK
     Route: 058
  5. REVATIO [Suspect]
     Active Substance: SILDENAFIL CITRATE
     Indication: PRODUCT USED FOR UNKNOWN INDICATION
     Dosage: UNK
     Dates: start: 20151022
  6. ADCIRCA [Concomitant]
     Active Substance: TADALAFIL
     Indication: PRODUCT USED FOR UNKNOWN INDICATION
  7. ASPIRIN                            /00002701/ [Concomitant]
     Active Substance: ASPIRIN
     Indication: PRODUCT USED FOR UNKNOWN INDICATION
     Dosage: 325 MG, UNK
  8. OPSUMIT [Suspect]
     Active Substance: MACITENTAN
     Indication: PRODUCT USED FOR UNKNOWN INDICATION
     Dosage: UNK
     Dates: start: 20151022
  9. REMODULIN [Suspect]
     Active Substance: TREPROSTINIL
     Dosage: 0.0285 ?G/KG/MIN, CONTINUING
     Route: 058
     Dates: start: 20130204
  10. TYVASO [Suspect]
     Active Substance: TREPROSTINIL
     Dosage: UNK
  11. REMODULIN [Suspect]
     Active Substance: TREPROSTINIL
     Dosage: 0.036 ?G/KG/MIN, CONTINUING
     Route: 041
     Dates: start: 20130204
  12. REMODULIN [Suspect]
     Active Substance: TREPROSTINIL
     Dosage: 0.0035 ?G/KG, CONTINUING
     Route: 058
     Dates: start: 20150204
  13. REMODULIN [Suspect]
     Active Substance: TREPROSTINIL
     Indication: PULMONARY ARTERIAL HYPERTENSION
     Dosage: 0.036 ?G/KG/MIN, CONTINUING
     Route: 041
     Dates: start: 20130112

REACTIONS (19)
  - Injection site discharge [Unknown]
  - Infusion site oedema [Not Recovered/Not Resolved]
  - Blister [Unknown]
  - Infusion site infection [Unknown]
  - Injection site pain [Unknown]
  - Pulmonary arterial hypertension [Unknown]
  - Cough [Unknown]
  - Dyspnoea [Recovered/Resolved]
  - Infusion site pain [Unknown]
  - Dyspnoea [Unknown]
  - Loss of consciousness [Unknown]
  - Infusion site haemorrhage [Unknown]
  - Weight decreased [Unknown]
  - Presyncope [Unknown]
  - Dizziness [None]
  - Malaise [Unknown]
  - Fall [Unknown]
  - No therapeutic response [Unknown]
  - Walking distance test abnormal [Unknown]

NARRATIVE: CASE EVENT DATE: 20150503
